FAERS Safety Report 23504836 (Version 2)
Quarter: 2024Q1

REPORT INFORMATION
  Report Type: Spontaneous
  Country: US (occurrence: US)
  Receive Date: 20240209
  Receipt Date: 20240229
  Transmission Date: 20240409
  Serious: Yes (Other)
  Sender: FDA-Public Use
  Company Number: US-AUROBINDO-AUR-APL-2024-005584

PATIENT
  Age: 12 Year
  Sex: Female
  Weight: 40 kg

DRUGS (6)
  1. DEXAMETHASONE [Suspect]
     Active Substance: DEXAMETHASONE
     Indication: Dystonia
     Dosage: 4 MILLIGRAM
     Route: 065
  2. DEXAMETHASONE [Suspect]
     Active Substance: DEXAMETHASONE
     Indication: Prophylaxis of nausea and vomiting
  3. ONDANSETRON [Suspect]
     Active Substance: ONDANSETRON
     Indication: Dystonia
     Dosage: 4 MILLIGRAM
     Route: 065
  4. ONDANSETRON [Suspect]
     Active Substance: ONDANSETRON
     Indication: Prophylaxis of nausea and vomiting
  5. BENZTROPINE [Suspect]
     Active Substance: BENZTROPINE
     Indication: Dystonia
     Dosage: UNK
     Route: 065
  6. BENZTROPINE [Suspect]
     Active Substance: BENZTROPINE
     Indication: Prophylaxis of nausea and vomiting

REACTIONS (1)
  - Drug ineffective [Unknown]
